FAERS Safety Report 5724301-X (Version None)
Quarter: 2008Q2

REPORT INFORMATION
  Report Type: 
  Country: None (occurrence: None)
  Receive Date: 20080428
  Receipt Date: 20080407
  Transmission Date: 20081010
  Serious: Yes (Other)
  Sender: FDA-Public Use
  Company Number: 2008010213

PATIENT
  Age: 65 Year
  Sex: Female
  Weight: 60.3284 kg

DRUGS (13)
  1. BENADRYL [Suspect]
     Dosage: ORAL
     Route: 048
  2. NEURONTIN [Suspect]
     Indication: TRIGEMINAL NEURALGIA
     Dosage: 300 MG TID (300 MG, 3 IN 1 D), ORAL
     Route: 048
     Dates: start: 19960101
  3. HYDROCODONE (HYDROCODONE) [Suspect]
     Dosage: 30 MG TID (30 MG, 3 IN 1 D)
  4. CELEBREX [Suspect]
  5. THYROID TAB [Concomitant]
  6. VALIUM [Concomitant]
  7. ESTROGENS SOL/INJ [Concomitant]
  8. CRESTOR [Concomitant]
  9. FLONASE [Concomitant]
  10. ACETYLSALICYLIC ACID SRT [Concomitant]
  11. AVELOX [Concomitant]
  12. HYPOTEARS (BENZALKONIUM CHLORIDE, EDETATE DISODIUM, MACROGOL, POLYVINY [Concomitant]
  13. HYDROCORTISONE [Concomitant]

REACTIONS (10)
  - CHEST DISCOMFORT [None]
  - CHOKING SENSATION [None]
  - CONSTIPATION [None]
  - DYSPHAGIA [None]
  - ILL-DEFINED DISORDER [None]
  - IMPAIRED DRIVING ABILITY [None]
  - JAW DISORDER [None]
  - MUSCLE DISORDER [None]
  - ORAL INTAKE REDUCED [None]
  - SPEECH DISORDER [None]
